FAERS Safety Report 9463758 (Version 2)
Quarter: 2013Q3

REPORT INFORMATION
  Report Type: Spontaneous
  Country: JP (occurrence: JP)
  Receive Date: 20130819
  Receipt Date: 20130819
  Transmission Date: 20140515
  Serious: Yes (Death, Other)
  Sender: FDA-Public Use
  Company Number: JP-GENZYME-THYM-1003886

PATIENT
  Age: 75 Year
  Sex: Female
  Weight: 58 kg

DRUGS (9)
  1. CRAVIT [Concomitant]
     Indication: INFECTION PROPHYLAXIS
     Dosage: 500 MG, QD
     Route: 048
     Dates: start: 20130326, end: 20130514
  2. GRAN [Concomitant]
     Indication: PANCYTOPENIA
     Dosage: 150 MCG, UNK
     Route: 058
     Dates: start: 20130510, end: 20130525
  3. ACICLOVIR [Concomitant]
     Indication: PRODUCT USED FOR UNKNOWN INDICATION
     Dosage: UNK
     Route: 065
     Dates: start: 20130521
  4. THYMOGLOBULINE [Suspect]
     Indication: APLASTIC ANAEMIA
     Dosage: 225 MG, QD
     Route: 042
     Dates: start: 20121129, end: 20121203
  5. THYMOGLOBULINE [Suspect]
     Dosage: 215 MG, QD
     Route: 042
     Dates: start: 20130508, end: 20130512
  6. BAKTAR [Concomitant]
     Indication: INFECTION PROPHYLAXIS
     Dosage: UNK
     Route: 048
     Dates: start: 20130419, end: 20130613
  7. SANDIMMUN [Concomitant]
     Indication: APLASTIC ANAEMIA
     Dosage: 115 MG, BID
     Route: 048
     Dates: start: 20130326, end: 201306
  8. PRIMOBOLAN [Concomitant]
     Indication: APLASTIC ANAEMIA
     Dosage: 5 MG, TID
     Route: 048
     Dates: start: 20130220, end: 20130613
  9. EXJADE [Concomitant]
     Indication: IRON OVERLOAD
     Dosage: 500 MG, QD
     Route: 048
     Dates: start: 20130227, end: 20130613

REACTIONS (4)
  - Blood culture positive [Unknown]
  - Post transplant lymphoproliferative disorder [Fatal]
  - Rhinitis allergic [Unknown]
  - Gastrooesophageal reflux disease [Unknown]
